FAERS Safety Report 12205508 (Version 1)
Quarter: 2016Q1

REPORT INFORMATION
  Report Type: Spontaneous
  Country: ES (occurrence: ES)
  Receive Date: 20160323
  Receipt Date: 20160323
  Transmission Date: 20160526
  Serious: Yes (Life-Threatening, Disabling)
  Sender: FDA-Public Use
  Company Number: ES-BAYER-2016-052567

PATIENT
  Age: 84 Year
  Sex: Male
  Weight: 51 kg

DRUGS (1)
  1. ADIRO 100 [Suspect]
     Active Substance: ASPIRIN
     Indication: CEREBRAL SMALL VESSEL ISCHAEMIC DISEASE
     Dosage: 100 MG, QD, 1 TABLET A DAY
     Route: 048
     Dates: start: 20090408, end: 20160314

REACTIONS (1)
  - Basal ganglia stroke [Recovering/Resolving]

NARRATIVE: CASE EVENT DATE: 20160305
